FAERS Safety Report 7365287-4 (Version None)
Quarter: 2011Q1

REPORT INFORMATION
  Report Type: 
  Country: None (occurrence: None)
  Receive Date: 20110322
  Receipt Date: 20110314
  Transmission Date: 20110831
  Serious: No
  Sender: FDA-Public Use
  Company Number: US-BIOGENIDEC-2010BI027427

PATIENT
  Sex: Male

DRUGS (1)
  1. TYSABRI [Suspect]
     Indication: MULTIPLE SCLEROSIS
     Route: 042
     Dates: start: 20100303, end: 20100803

REACTIONS (5)
  - ANTIBODY TEST [None]
  - INFUSION RELATED REACTION [None]
  - ERYTHEMA [None]
  - DYSPNOEA [None]
  - COUGH [None]
